FAERS Safety Report 8069706-X (Version None)
Quarter: 2012Q1

REPORT INFORMATION
  Report Type: 
  Country: None (occurrence: None)
  Receive Date: 20120125
  Receipt Date: 20110908
  Transmission Date: 20120608
  Serious: No
  Sender: FDA-Public Use
  Company Number: US-PFIZER INC-2011US-48372

PATIENT
  Sex: Female

DRUGS (1)
  1. CALAN [Suspect]
     Indication: PRODUCT USED FOR UNKNOWN INDICATION
     Dosage: UNK

REACTIONS (2)
  - MEDICATION ERROR [None]
  - INCORRECT DOSE ADMINISTERED [None]
